FAERS Safety Report 7248009-7 (Version None)
Quarter: 2011Q1

REPORT INFORMATION
  Report Type: 
  Country: None (occurrence: None)
  Receive Date: 20110127
  Receipt Date: 20110119
  Transmission Date: 20110831
  Serious: Yes (Other)
  Sender: FDA-Public Use
  Company Number: GR-PFIZER INC-2011010814

PATIENT
  Age: 70 Year
  Sex: Female
  Weight: 90 kg

DRUGS (12)
  1. TAXOL [Suspect]
     Indication: BREAST CANCER
     Dosage: 378 MG, ONCE EVERY 2 WEEKS
     Route: 042
     Dates: start: 20080326, end: 20080409
  2. HYDROCHLOROTHIAZIDE/OLMESARTAN MEDOXOMIL [Concomitant]
     Indication: HYPERTENSION
     Dosage: 1 DF, 1X/DAY
     Route: 048
     Dates: start: 19980101
  3. NEULASTA [Concomitant]
     Indication: PROPHYLAXIS
     Dosage: 6 MG, ONCE EVERY 2 WEEKS
     Dates: start: 20080212, end: 20080604
  4. FARMORUBICIN [Suspect]
     Indication: BREAST CANCER
     Dosage: 208 MG, ONCE EVERY 2 WEEKS
     Route: 042
     Dates: start: 20080212, end: 20080227
  5. THYROHORMONE [Concomitant]
     Indication: THYROIDECTOMY
     Dosage: 0.1 MG, 1X/DAY
     Route: 048
     Dates: start: 19750101
  6. ZANTAC [Concomitant]
     Indication: PROPHYLAXIS
     Dosage: 150 MG, ONCE EVERY 2 WEEKS
     Route: 042
     Dates: start: 20080212, end: 20080604
  7. FENISTIL [Concomitant]
     Indication: PROPHYLAXIS
     Dosage: 4 MG, ONCE EVERY 2 WEEKS
     Route: 042
     Dates: start: 20080212, end: 20080604
  8. FARMORUBICIN [Suspect]
     Dosage: 156 MG, ONCE EVERY 2 WEEKS
     Route: 042
     Dates: start: 20080312, end: 20080312
  9. LIPITOR [Concomitant]
     Indication: HYPERCHOLESTEROLAEMIA
     Dosage: 1 DF, 1X/DAY
     Dates: start: 20060101
  10. ZOFRON [Concomitant]
     Indication: PROPHYLAXIS
     Dosage: 8 MG, ONCE EVERY 2 WEEKS
     Route: 042
     Dates: start: 20080212, end: 20080604
  11. TAXOL [Suspect]
     Dosage: 285 MG, ONCE EVERY 2 WEEKS
     Route: 042
     Dates: start: 20080423, end: 20080423
  12. DEXAMETHASONE [Concomitant]
     Indication: PROPHYLAXIS
     Dosage: 20 MG, ONCE EVERY 2 WEEKS
     Route: 042
     Dates: start: 20080212, end: 20080604

REACTIONS (2)
  - PAIN [None]
  - DIARRHOEA [None]
